FAERS Safety Report 8740396 (Version 3)
Quarter: 2012Q4

REPORT INFORMATION
  Report Type: 
  Country: DK (occurrence: DK)
  Receive Date: 20120823
  Receipt Date: 20121214
  Transmission Date: 20130627
  Serious: Yes (Hospitalization)
  Sender: FDA-Public Use
  Company Number: DK-B.I. PHARMACEUTICALS,INC./RIDGEFIELD-2012-SW-00617DB

PATIENT
  Age: 85 Year
  Sex: Female

DRUGS (7)
  1. PRADAXA [Suspect]
     Indication: ATRIAL FIBRILLATION
     Dosage: 220 mg
     Dates: start: 20120713, end: 20120725
  2. CONTALGIN [Suspect]
     Indication: PAIN
     Dosage: 20 mg
     Dates: start: 20120718, end: 20120725
  3. DIGOXIN [Concomitant]
     Dosage: 125 mcg
  4. DIURAL [Concomitant]
     Dosage: 40 mg 1 - 2 x daily
  5. KALEORID [Concomitant]
     Dosage: 1500 mg
  6. HJERTEMAGNYL [Concomitant]
     Dosage: 75 mg
  7. PANTOLOC [Concomitant]
     Dosage: 20 mg

REACTIONS (3)
  - Myoclonus [Recovered/Resolved]
  - International normalised ratio increased [Recovered/Resolved]
  - Encephalopathy [Unknown]
